FAERS Safety Report 8574460-9 (Version None)
Quarter: 2012Q3

REPORT INFORMATION
  Report Type: 
  Country: None (occurrence: None)
  Receive Date: 20120806
  Receipt Date: 20111027
  Transmission Date: 20120928
  Serious: No
  Sender: FDA-Public Use
  Company Number: US-ABBOTT-11P-163-0869697-00

PATIENT
  Sex: Female
  Weight: 59.02 kg

DRUGS (1)
  1. DEPAKOTE ER [Suspect]
     Indication: BIPOLAR DISORDER
     Route: 048
     Dates: start: 20090201

REACTIONS (3)
  - TENSION [None]
  - PAIN [None]
  - SINUS HEADACHE [None]
